FAERS Safety Report 4461659-6 (Version None)
Quarter: 2004Q3

REPORT INFORMATION
  Report Type: 
  Country: None (occurrence: None)
  Receive Date: 20040910
  Receipt Date: 20040902
  Transmission Date: 20050211
  Serious: Yes (Hospitalization, Other)
  Sender: FDA-Public Use
  Company Number: 200410326BBE

PATIENT
  Age: 24 Month
  Sex: Female

DRUGS (1)
  1. IMMUNE GLOBULIN INTRAVENOUS (HUMAN) [Suspect]
     Indication: KAWASAKI'S DISEASE
     Dosage: 400 MG/KG, INTRAVENOUS
     Route: 042

REACTIONS (28)
  - AGGRESSION [None]
  - ATRIAL NATRIURETIC PEPTIDE INCREASED [None]
  - BLOOD ALBUMIN DECREASED [None]
  - BLOOD PRESSURE DECREASED [None]
  - BLOOD SODIUM DECREASED [None]
  - BRAIN NATRIURETIC PEPTIDE INCREASED [None]
  - CARDIAC FAILURE [None]
  - CARDIOMEGALY [None]
  - CHEILITIS [None]
  - CONJUNCTIVAL HYPERAEMIA [None]
  - ERYTHEMA MULTIFORME [None]
  - HAEMATOCRIT DECREASED [None]
  - KAWASAKI'S DISEASE [None]
  - LOCALISED EXFOLIATION [None]
  - LYMPHADENOPATHY [None]
  - MITRAL VALVE INCOMPETENCE [None]
  - PERICARDIAL EFFUSION [None]
  - PHARYNGEAL ERYTHEMA [None]
  - PROTEIN URINE PRESENT [None]
  - PULMONARY CONGESTION [None]
  - PYREXIA [None]
  - RASH [None]
  - RESPIRATORY RATE INCREASED [None]
  - SINUS TACHYCARDIA [None]
  - URINE KETONE BODY PRESENT [None]
  - URINE OUTPUT DECREASED [None]
  - VENTRICULAR DYSFUNCTION [None]
  - WHITE BLOOD CELL COUNT INCREASED [None]
